FAERS Safety Report 7054722-7 (Version None)
Quarter: 2010Q4

REPORT INFORMATION
  Report Type: 
  Country: None (occurrence: None)
  Receive Date: 20101015
  Receipt Date: 20101006
  Transmission Date: 20110411
  Serious: Yes (Life-Threatening, Hospitalization, Other)
  Sender: FDA-Public Use
  Company Number: 2010AC000529

PATIENT
  Age: 68 Year
  Sex: Female

DRUGS (18)
  1. DIGOXIN [Suspect]
     Dosage: 0.25 MG;QD;PO
     Route: 048
     Dates: start: 20021018, end: 20070604
  2. DIGOXIN [Suspect]
     Dosage: 0.25 MG;QD;PO
     Route: 048
     Dates: start: 20070609, end: 20070911
  3. DIGOXIN [Suspect]
     Dosage: 0.125 MG;QD;PO
     Route: 048
     Dates: start: 20070914
  4. NEURONTIN [Concomitant]
  5. LANTUS [Concomitant]
  6. NOVOLOG [Concomitant]
  7. PLAVIX [Concomitant]
  8. LEXAPRO [Concomitant]
  9. LASIX [Concomitant]
  10. K-DUR [Concomitant]
  11. ATIVAN [Concomitant]
  12. ALTACE [Concomitant]
  13. DARVOCET [Concomitant]
  14. ASPIRIN [Concomitant]
  15. NAMENDA [Concomitant]
  16. COREG [Concomitant]
  17. PROTONIX [Concomitant]
  18. DIGIBIND [Concomitant]

REACTIONS (24)
  - BLOOD POTASSIUM INCREASED [None]
  - BLOOD UREA INCREASED [None]
  - BRAIN NATRIURETIC PEPTIDE INCREASED [None]
  - BUNDLE BRANCH BLOCK LEFT [None]
  - CARDIOACTIVE DRUG LEVEL INCREASED [None]
  - CEREBROVASCULAR ACCIDENT [None]
  - CONTUSION [None]
  - CORONARY ARTERIAL STENT INSERTION [None]
  - ECONOMIC PROBLEM [None]
  - ELECTROCARDIOGRAM ST SEGMENT DEPRESSION [None]
  - ENDARTERECTOMY [None]
  - FALL [None]
  - GLOMERULAR FILTRATION RATE DECREASED [None]
  - HYPOTENSION [None]
  - LETHARGY [None]
  - MULTIPLE INJURIES [None]
  - RECTAL HAEMORRHAGE [None]
  - REFUSAL OF TREATMENT BY PATIENT [None]
  - REFUSAL OF TREATMENT BY RELATIVE [None]
  - SINUS BRADYCARDIA [None]
  - SKIN LACERATION [None]
  - THERAPEUTIC AGENT TOXICITY [None]
  - TROPONIN INCREASED [None]
  - UNEVALUABLE EVENT [None]
